FAERS Safety Report 15190055 (Version 1)
Quarter: 2018Q3

REPORT INFORMATION
  Report Type: Spontaneous
  Country: CA (occurrence: CA)
  Receive Date: 20180724
  Receipt Date: 20180724
  Transmission Date: 20181010
  Serious: Yes (Other)
  Sender: FDA-Public Use
  Company Number: CA-BRACCO-001250

PATIENT
  Age: 27 Year
  Sex: Female

DRUGS (1)
  1. ISOVUE 370 [Suspect]
     Active Substance: IOPAMIDOL
     Indication: COMPUTERISED TOMOGRAM
     Dosage: 65 ML, SINGLE
     Route: 042
     Dates: start: 20170227, end: 20170227

REACTIONS (8)
  - Eye irritation [Recovered/Resolved]
  - Laryngeal oedema [Recovered/Resolved]
  - Cough [Recovered/Resolved]
  - Blood glucose abnormal [Unknown]
  - Oxygen saturation abnormal [Unknown]
  - Lip swelling [Unknown]
  - Pruritus [Unknown]
  - Sneezing [Recovered/Resolved]

NARRATIVE: CASE EVENT DATE: 20170227
